FAERS Safety Report 14133570 (Version 1)
Quarter: 2017Q4

REPORT INFORMATION
  Report Type: Spontaneous
  Country: US (occurrence: None)
  Receive Date: 20171026
  Receipt Date: 20171026
  Transmission Date: 20180321
  Serious: Yes (Hospitalization)
  Sender: FDA-Public Use
  Company Number: None

PATIENT
  Age: 67 Year
  Sex: Female

DRUGS (2)
  1. ESBRIET [Suspect]
     Active Substance: PIRFENIDONE
     Indication: IDIOPATHIC PULMONARY FIBROSIS
     Dosage: 267MG TID DAYS 1-7 PO
     Route: 048
     Dates: start: 20170414
  2. ESBRIET [Suspect]
     Active Substance: PIRFENIDONE
     Dosage: 534MG BID DAYS 8-14 PO
     Route: 048

REACTIONS (1)
  - Hospitalisation [None]
